FAERS Safety Report 15196774 (Version 3)
Quarter: 2018Q4

REPORT INFORMATION
  Report Type: Spontaneous
  Country: DE (occurrence: DE)
  Receive Date: 20180725
  Receipt Date: 20181003
  Transmission Date: 20190204
  Serious: Yes (Other)
  Sender: FDA-Public Use
  Company Number: DE-NOVOPROD-609919

PATIENT
  Age: 12 Year
  Sex: Male
  Weight: 51.1 kg

DRUGS (5)
  1. NOVORAPID [Suspect]
     Active Substance: INSULIN ASPART
     Dosage: UNK
     Route: 058
  2. NOVORAPID [Suspect]
     Active Substance: INSULIN ASPART
     Dosage: 11 IU+ NA
     Route: 058
     Dates: start: 20180704, end: 20180705
  3. NOVORAPID [Suspect]
     Active Substance: INSULIN ASPART
     Indication: TYPE 1 DIABETES MELLITUS
     Dosage: UNK
     Route: 058
  4. NOVORAPID [Suspect]
     Active Substance: INSULIN ASPART
     Dosage: 11 IU+ NA
     Route: 058
     Dates: start: 20180704, end: 20180705
  5. NOVORAPID [Suspect]
     Active Substance: INSULIN ASPART
     Dosage: 11 IU+ NA
     Route: 058
     Dates: start: 20180704, end: 20180705

REACTIONS (9)
  - Liquid product physical issue [Unknown]
  - Diabetic ketoacidosis [Unknown]
  - Hyperglycaemia [Unknown]
  - Diabetic ketoacidosis [Unknown]
  - Product physical issue [Unknown]
  - Drug ineffective [Unknown]
  - Blood glucose increased [Recovering/Resolving]
  - Product leakage [Unknown]
  - Liquid product physical issue [Unknown]

NARRATIVE: CASE EVENT DATE: 201801
